FAERS Safety Report 10076331 (Version 3)
Quarter: 2014Q2

REPORT INFORMATION
  Report Type: Spontaneous
  Country: US (occurrence: None)
  Receive Date: 20140410
  Receipt Date: 20140604
  Transmission Date: 20141212
  Serious: Yes (Hospitalization)
  Sender: FDA-Public Use
  Company Number: UTC-046780

PATIENT
  Age: 59 Year
  Sex: Male
  Weight: 81.2 kg

DRUGS (3)
  1. REMODULIN [Suspect]
     Indication: PULMONARY ARTERIAL HYPERTENSION
     Dosage: 0.078 UG/KG, 1 IN 1 MIN
     Route: 041
     Dates: start: 20110103
  2. ADCIRCA (TADALAFIL) [Concomitant]
  3. WARFARIN [Concomitant]

REACTIONS (5)
  - Pneumonia [None]
  - Device related infection [None]
  - Pyrexia [None]
  - Device malfunction [None]
  - Device related infection [None]
